FAERS Safety Report 7361086-8 (Version None)
Quarter: 2011Q1

REPORT INFORMATION
  Report Type: 
  Country: None (occurrence: None)
  Receive Date: 20110318
  Receipt Date: 20110314
  Transmission Date: 20110831
  Serious: Yes (Death, Life-Threatening, Hospitalization, Disabling, Other)
  Sender: FDA-Public Use
  Company Number: PHFR2010GB05338

PATIENT
  Sex: Male

DRUGS (2)
  1. CLOZARIL [Suspect]
     Indication: SCHIZOPHRENIA
     Dosage: UNK
     Dates: start: 20090727
  2. CLOZARIL [Suspect]
     Dosage: 450MG DAILY
     Route: 048

REACTIONS (3)
  - METASTASES TO BONE [None]
  - ANAEMIA [None]
  - LUNG CANCER METASTATIC [None]
